FAERS Safety Report 10929295 (Version 1)
Quarter: 2015Q1

REPORT INFORMATION
  Report Type: Spontaneous
  Country: ES (occurrence: None)
  Receive Date: 20150317
  Receipt Date: 20150317
  Transmission Date: 20150721
  Serious: Yes (Life-Threatening, Other)
  Sender: FDA-Public Use
  Company Number: FK201501174

PATIENT
  Age: 55 Year
  Sex: Female

DRUGS (1)
  1. MORPHINE (MANUFACTURER UNKNOWN) (MORPHINE) (MORPHINE) [Suspect]
     Active Substance: MORPHINE
     Indication: PAIN
     Dosage: 1-4 MG, AMINISTERED OVER 2 HOURS, INTRATHECAL
     Route: 037

REACTIONS (11)
  - Nausea [None]
  - Vertigo [None]
  - Oxygen saturation decreased [None]
  - Blood pressure diastolic decreased [None]
  - Device dislocation [None]
  - Vomiting [None]
  - Respiratory acidosis [None]
  - Neurosensory hypoacusis [None]
  - Loss of consciousness [None]
  - Toxicity to various agents [None]
  - Respiratory depression [None]
